FAERS Safety Report 8592063-7 (Version None)
Quarter: 2012Q3

REPORT INFORMATION
  Report Type: 
  Country: None (occurrence: None)
  Receive Date: 20120814
  Receipt Date: 20120809
  Transmission Date: 20120928
  Serious: Yes (Death)
  Sender: FDA-Public Use
  Company Number: JP-ASTELLAS-2012JP004632

PATIENT
  Sex: Female

DRUGS (8)
  1. REBAMIPIDE [Concomitant]
     Indication: GASTRITIS
     Dosage: 100 MG, BID
     Route: 048
     Dates: end: 20120501
  2. ENBREL [Suspect]
     Indication: RHEUMATOID ARTHRITIS
     Dosage: 50 MG, WEEKLY
     Route: 058
     Dates: end: 20120501
  3. RHEUMATREX [Suspect]
     Indication: RHEUMATOID ARTHRITIS
     Dosage: UNK
     Route: 048
     Dates: end: 20120501
  4. PREDNISOLONE [Concomitant]
     Indication: RHEUMATOID ARTHRITIS
     Dosage: 2.5 MG, BID
     Route: 048
     Dates: end: 20120501
  5. PROGRAF [Suspect]
     Indication: RHEUMATOID ARTHRITIS
     Dosage: 1 MG, UID/QD
     Route: 048
     Dates: end: 20120501
  6. ISONIAZID [Concomitant]
     Indication: TUBERCULOSIS
     Dosage: 200 MG, UID/QD
     Route: 048
     Dates: end: 20120501
  7. FOLIC ACID [Concomitant]
     Indication: FOLATE DEFICIENCY
     Dosage: 5 MG, UID/QD
     Route: 048
     Dates: end: 20120501
  8. PYDOXAL [Concomitant]
     Indication: VITAMIN B6 DEFICIENCY
     Dosage: 10 MG, BID
     Route: 048
     Dates: end: 20120501

REACTIONS (2)
  - INTENTIONAL DRUG MISUSE [None]
  - INTERSTITIAL LUNG DISEASE [None]
